FAERS Safety Report 8892055 (Version 1)
Quarter: 2012Q4

REPORT INFORMATION
  Report Type: 
  Country: US (occurrence: US)
  Receive Date: 20121107
  Receipt Date: 20121107
  Transmission Date: 20130627
  Serious: No
  Sender: FDA-Public Use
  Company Number: US-AMGEN-USASP2011058020

PATIENT
  Age: 57 Year
  Sex: Female

DRUGS (2)
  1. ENBREL [Suspect]
     Indication: ANKYLOSING SPONDYLITIS
     Dosage: UNK
     Dates: start: 20110418, end: 201108
  2. METHOTREXATE [Concomitant]
     Dates: start: 200910

REACTIONS (3)
  - Motion sickness [Recovered/Resolved]
  - Malaise [Unknown]
  - Drug ineffective [Not Recovered/Not Resolved]
